FAERS Safety Report 20750662 (Version 1)
Quarter: 2022Q2

REPORT INFORMATION
  Report Type: Spontaneous
  Country: US (occurrence: US)
  Receive Date: 20220426
  Receipt Date: 20220426
  Transmission Date: 20220721
  Serious: Yes (Other)
  Sender: FDA-Public Use
  Company Number: US-BRISTOL-MYERS SQUIBB COMPANY-2022-027722

PATIENT
  Age: 85 Year
  Sex: Male
  Weight: 108.2 kg

DRUGS (17)
  1. REVLIMID [Suspect]
     Active Substance: LENALIDOMIDE
     Indication: Product used for unknown indication
     Dosage: 14 DAYS ON, 7 DAYS OFF
     Route: 048
     Dates: start: 20141110, end: 20150204
  2. REVLIMID [Suspect]
     Active Substance: LENALIDOMIDE
     Dosage: 14 DAYS ON, 7 DAYS OFF
     Route: 048
     Dates: start: 20150204, end: 20150819
  3. REVLIMID [Suspect]
     Active Substance: LENALIDOMIDE
     Dosage: 21 DAYS ON, 7 DAYS OFF
     Route: 048
     Dates: start: 20151007, end: 20151129
  4. REVLIMID [Suspect]
     Active Substance: LENALIDOMIDE
     Dosage: EVERY OTHER DAY FOR 28 DAYS
     Route: 048
     Dates: start: 20170512, end: 20170727
  5. DEXAMETHASONE [Suspect]
     Active Substance: DEXAMETHASONE
     Indication: Plasma cell myeloma
     Route: 048
     Dates: start: 20140630, end: 20150819
  6. DEXAMETHASONE [Suspect]
     Active Substance: DEXAMETHASONE
     Dosage: HIGH DOSE
     Route: 048
     Dates: start: 20200814, end: 20200918
  7. DEXAMETHASONE [Suspect]
     Active Substance: DEXAMETHASONE
     Route: 048
     Dates: start: 20211007
  8. POMALIDOMIDE [Suspect]
     Active Substance: POMALIDOMIDE
     Indication: Product used for unknown indication
     Dosage: 21 DAYS ON 7DAYS OFF IN A 28 DAY CYCLE
     Route: 048
     Dates: start: 20211007, end: 20211228
  9. POMALIDOMIDE [Suspect]
     Active Substance: POMALIDOMIDE
     Dosage: 21 DAYS ON 7DAYS OFF IN A 28 DAY CYCLE
     Route: 048
     Dates: start: 20211229, end: 20220107
  10. VELCADE [Suspect]
     Active Substance: BORTEZOMIB
     Indication: Product used for unknown indication
     Dosage: D1, 8 Q3W
     Route: 058
     Dates: start: 20140630, end: 20150819
  11. VELCADE [Suspect]
     Active Substance: BORTEZOMIB
     Dosage: D1, 8 Q3W
     Route: 058
     Dates: start: 20150826, end: 20151007
  12. VELCADE [Suspect]
     Active Substance: BORTEZOMIB
     Dosage: 1XWEEKLY, DAY 1 Q 7DAYS, 1 WEEK OFF Q 14DAYS
     Route: 058
     Dates: start: 20170727, end: 20200806
  13. VELCADE [Suspect]
     Active Substance: BORTEZOMIB
     Dosage: 1XWEEKLY,NO REST PERIOD, DAY 1 Q 7DAYS
     Route: 058
     Dates: start: 20200814, end: 20200918
  14. VELCADE [Suspect]
     Active Substance: BORTEZOMIB
     Dosage: EVERY 14DAYS
     Route: 058
     Dates: start: 20200918, end: 20210917
  15. CYTOXAN [Suspect]
     Active Substance: CYCLOPHOSPHAMIDE
     Indication: Product used for unknown indication
     Dosage: D 1, 8, 15, 22
     Route: 042
     Dates: start: 20200814, end: 20200918
  16. DARZALEX [Suspect]
     Active Substance: DARATUMUMAB
     Indication: Product used for unknown indication
     Route: 042
     Dates: start: 20211007, end: 20211126
  17. DARZALEX [Suspect]
     Active Substance: DARATUMUMAB
     Dosage: SUBCUTANEOUS INJECTION
     Route: 042
     Dates: start: 20211213

REACTIONS (1)
  - Toxicity to various agents [Unknown]
